FAERS Safety Report 6742047-6 (Version None)
Quarter: 2010Q2

REPORT INFORMATION
  Report Type: 
  Country: None (occurrence: None)
  Receive Date: 20100524
  Receipt Date: 20100511
  Transmission Date: 20101027
  Serious: Yes (Other)
  Sender: FDA-Public Use
  Company Number: DKLU1062259

PATIENT
  Age: 17 Month
  Sex: Male

DRUGS (3)
  1. COSMEGEN [Suspect]
     Indication: FIBROSARCOMA
     Dosage: INTRAVENOUS (NOT OTHERWISE SPECIFIED)
     Route: 042
  2. ONCOVIN (VINCRISTINE SULFATE) (INJECTION) [Concomitant]
  3. CYCLOPHOSPHAMIDE [Concomitant]

REACTIONS (1)
  - DISSEMINATED INTRAVASCULAR COAGULATION [None]
